FAERS Safety Report 20314925 (Version 1)
Quarter: 2022Q1

REPORT INFORMATION
  Report Type: Spontaneous
  Country: CN (occurrence: CN)
  Receive Date: 20220110
  Receipt Date: 20220110
  Transmission Date: 20220423
  Serious: Yes (Other)
  Sender: FDA-Public Use
  Company Number: CN-PFIZER INC-202200001169

PATIENT
  Age: 81 Year
  Sex: Male
  Weight: 70 kg

DRUGS (5)
  1. SOLU-MEDROL [Suspect]
     Active Substance: METHYLPREDNISOLONE SODIUM SUCCINATE
     Indication: Chronic obstructive pulmonary disease
     Dosage: 40 MG, 2X/DAY
     Route: 041
     Dates: start: 20211213, end: 20211215
  2. SOLU-MEDROL [Suspect]
     Active Substance: METHYLPREDNISOLONE SODIUM SUCCINATE
     Dosage: 40 MG, 1X/DAY
     Route: 041
     Dates: start: 20211216
  3. SODIUM CHLORIDE [Concomitant]
     Active Substance: SODIUM CHLORIDE
     Indication: Chronic obstructive pulmonary disease
     Dosage: 20 ML, 2X/DAY
     Route: 041
     Dates: start: 20211213, end: 20211215
  4. SODIUM CHLORIDE [Concomitant]
     Active Substance: SODIUM CHLORIDE
     Dosage: 20 ML, 1X/DAY
     Route: 041
     Dates: start: 20211216
  5. LEVOFLOXACIN/SODIUM CHLORIDE [Concomitant]
     Indication: Chronic obstructive pulmonary disease
     Dosage: 0.5 G, 1X/DAY
     Route: 041
     Dates: start: 20211213, end: 20211216

REACTIONS (2)
  - Sleep disorder [Recovering/Resolving]
  - Off label use [Unknown]

NARRATIVE: CASE EVENT DATE: 20211213
